FAERS Safety Report 7076767-3 (Version None)
Quarter: 2010Q4

REPORT INFORMATION
  Report Type: 
  Country: None (occurrence: None)
  Receive Date: 20101101
  Receipt Date: 20101026
  Transmission Date: 20110411
  Serious: Yes (Death, Other)
  Sender: FDA-Public Use
  Company Number: LB-CELGENEUS-093-50794-10090460

PATIENT
  Sex: Male

DRUGS (1)
  1. VIDAZA [Suspect]
     Route: 051
     Dates: start: 20100521, end: 20100527

REACTIONS (2)
  - FEBRILE NEUTROPENIA [None]
  - SEPTIC SHOCK [None]
